FAERS Safety Report 15685656 (Version 1)
Quarter: 2018Q4

REPORT INFORMATION
  Report Type: Spontaneous
  Country: US (occurrence: US)
  Receive Date: 20181204
  Receipt Date: 20181204
  Transmission Date: 20190205
  Serious: Yes (Death, Other)
  Sender: FDA-Public Use
  Company Number: US-BRISTOL-MYERS SQUIBB COMPANY-BMS-2018-114035

PATIENT
  Sex: Female
  Weight: 52.1 kg

DRUGS (1)
  1. OPDIVO [Suspect]
     Active Substance: NIVOLUMAB
     Indication: LUNG NEOPLASM MALIGNANT
     Dosage: UNAVAILABLE
     Route: 065

REACTIONS (4)
  - Malignant neoplasm progression [Fatal]
  - Sepsis [Fatal]
  - Pneumonia [Fatal]
  - Urinary tract infection [Fatal]
